FAERS Safety Report 5759929 (Version 4)
Quarter: 2020Q3

REPORT INFORMATION
  Report Type: Report from Study
  Country: BE (occurrence: BE)
  Receive Date: 20050317
  Receipt Date: 20060119
  Transmission Date: 20201105
  Serious: Yes (Life-Threatening)
  Sender: FDA-Public Use
  Company Number: BE-JNJFOC-20050301575

PATIENT
  Age: 70 Year
  Sex: Female
  Weight: 60 kg

DRUGS (4)
  1. ABCIXIMAB [Suspect]
     Active Substance: ABCIXIMAB
     Indication: ISCHAEMIC STROKE
     Route: 042
  2. ABCIXIMAB [Suspect]
     Active Substance: ABCIXIMAB
     Indication: ISCHAEMIC STROKE
     Route: 042
  3. PLACEBO [Suspect]
     Active Substance: UNSPECIFIED INGREDIENT
     Indication: ISCHAEMIC STROKE
     Route: 042
  4. PLACEBO [Suspect]
     Active Substance: UNSPECIFIED INGREDIENT
     Indication: ISCHAEMIC STROKE
     Route: 042

REACTIONS (6)
  - Pulmonary oedema [Recovered/Resolved]
  - Drug interaction [None]
  - Pneumonia [None]
  - Drug hypersensitivity [None]
  - Erythema [None]
  - General physical health deterioration [None]

NARRATIVE: CASE EVENT DATE: 20050305
